FAERS Safety Report 10058415 (Version 2)
Quarter: 2014Q2

REPORT INFORMATION
  Report Type: Spontaneous
  Country: US (occurrence: US)
  Receive Date: 20140404
  Receipt Date: 20140404
  Transmission Date: 20141212
  Serious: Yes (Death)
  Sender: FDA-Public Use
  Company Number: US-GE HEALTHCARE MEDICAL DIAGNOSTICS-OSCN-PR-0804S-0198

PATIENT
  Sex: Female

DRUGS (2)
  1. OPTIMARK [Suspect]
     Dosage: MULTIPLE ADMINISTRATIONS
     Route: 042
     Dates: start: 200511, end: 200605
  2. OPTIMARK [Suspect]
     Route: 042
     Dates: start: 200605, end: 200605

REACTIONS (1)
  - Nephrogenic systemic fibrosis [Fatal]
